FAERS Safety Report 4675035-4 (Version None)
Quarter: 2005Q2

REPORT INFORMATION
  Report Type: 
  Country: None (occurrence: None)
  Receive Date: 20050525
  Receipt Date: 20050510
  Transmission Date: 20051028
  Serious: Yes (Hospitalization, Other)
  Sender: FDA-Public Use
  Company Number: 200503788

PATIENT
  Age: 48 Year
  Sex: Female

DRUGS (3)
  1. BOTOX COSMETIC [Suspect]
     Indication: SKIN WRINKLING
     Dosage: 60 UNITS PRN IM
     Route: 030
     Dates: start: 20050428
  2. RESTYLANE [Suspect]
     Indication: SKIN WRINKLING
     Dosage: 2.4 ML PRN
     Dates: start: 20050428
  3. PROZAC [Concomitant]

REACTIONS (5)
  - ANAPHYLACTIC REACTION [None]
  - ANGIONEUROTIC OEDEMA [None]
  - DYSPHAGIA [None]
  - EYELID PTOSIS [None]
  - PULMONARY OEDEMA [None]
